FAERS Safety Report 4320035-7 (Version None)
Quarter: 2004Q1

REPORT INFORMATION
  Report Type: 
  Country: None (occurrence: None)
  Receive Date: 20040315
  Receipt Date: 20031223
  Transmission Date: 20041129
  Serious: No
  Sender: FDA-Public Use
  Company Number: 2003192155US

PATIENT
  Age: 51 Year
  Sex: Female

DRUGS (6)
  1. BEXTRA [Suspect]
     Indication: OSTEOARTHRITIS
     Dosage: 20 MG,
  2. TYLENOL W/ CODEINE [Concomitant]
  3. ROBAXIN [Concomitant]
  4. ELAVIL [Concomitant]
  5. XANAX [Concomitant]
  6. DETROL [Concomitant]

REACTIONS (4)
  - ACCIDENTAL EXPOSURE [None]
  - FEELING ABNORMAL [None]
  - PRURITUS [None]
  - SWELLING FACE [None]
